FAERS Safety Report 6451534-X (Version None)
Quarter: 2009Q4

REPORT INFORMATION
  Report Type: 
  Country: None (occurrence: None)
  Receive Date: 20091123
  Receipt Date: 20091117
  Transmission Date: 20100525
  Serious: Yes (Hospitalization)
  Sender: FDA-Public Use
  Company Number: US-BRISTOL-MYERS SQUIBB COMPANY-14861595

PATIENT
  Age: 73 Year
  Sex: Female
  Weight: 57 kg

DRUGS (4)
  1. ERBITUX [Suspect]
     Indication: NON-SMALL CELL LUNG CANCER
     Dosage: DAY 57 SINGLE AGENT ERBITUX
     Dates: start: 20090831, end: 20091026
  2. TAXOL [Suspect]
     Indication: NON-SMALL CELL LUNG CANCER
     Dosage: RECIEVED 5 DOSES WITH RADIATION
     Dates: start: 20090908, end: 20091005
  3. CARBOPLATIN [Suspect]
     Indication: NON-SMALL CELL LUNG CANCER
     Dosage: RECEIVED 5 DOSES AT AUC OF 2
     Dates: start: 20090908, end: 20091005
  4. RADIATION THERAPY [Suspect]
     Indication: NON-SMALL CELL LUNG CANCER
     Dosage: 1 DF= 74 GY NO OF FRACTIONS 37, NO OF ELAPSED DAYS 53
     Dates: start: 20090831, end: 20091022

REACTIONS (8)
  - ATRIAL FIBRILLATION [None]
  - DECREASED APPETITE [None]
  - FATIGUE [None]
  - HYPOALBUMINAEMIA [None]
  - HYPOCALCAEMIA [None]
  - NAUSEA [None]
  - SYNCOPE [None]
  - WEIGHT DECREASED [None]
